FAERS Safety Report 21939062 (Version 1)
Quarter: 2023Q1

REPORT INFORMATION
  Report Type: Report from Study
  Country: US (occurrence: US)
  Receive Date: 20230201
  Receipt Date: 20230201
  Transmission Date: 20230418
  Serious: Yes (Hospitalization)
  Sender: FDA-Public Use
  Company Number: US-EXELIXIS-CABO-22054883

PATIENT
  Age: 64 Year
  Sex: Male
  Weight: 57.143 kg

DRUGS (6)
  1. CABOMETYX [Suspect]
     Active Substance: CABOZANTINIB S-MALATE
     Indication: Renal cancer
     Dosage: 40 MG, QD
     Route: 048
     Dates: start: 20220623, end: 20220720
  2. OPDIVO [Concomitant]
     Active Substance: NIVOLUMAB
  3. DOCUSATE [Concomitant]
     Active Substance: DOCUSATE
     Dosage: UNK
  4. Geri kot [Concomitant]
  5. MIRALAX [Concomitant]
     Active Substance: POLYETHYLENE GLYCOL 3350
     Dosage: UNK
  6. WITCH HAZEL [Concomitant]
     Active Substance: WITCH HAZEL

REACTIONS (5)
  - Abdominal pain [Unknown]
  - Decreased appetite [Recovered/Resolved]
  - Nausea [Unknown]
  - Vomiting [Unknown]
  - Weight decreased [Recovering/Resolving]

NARRATIVE: CASE EVENT DATE: 20220810
